FAERS Safety Report 17628473 (Version 1)
Quarter: 2020Q2

REPORT INFORMATION
  Report Type: Spontaneous
  Country: GB (occurrence: GB)
  Receive Date: 20200406
  Receipt Date: 20200406
  Transmission Date: 20200713
  Serious: No
  Sender: FDA-Public Use
  Company Number: GB-ALKEM LABORATORIES LIMITED-GB-ALKEM-2020-00675

PATIENT
  Age: 30 Year
  Sex: Male

DRUGS (5)
  1. EMTRICITABINE [Concomitant]
     Active Substance: EMTRICITABINE
     Indication: HISTOPLASMOSIS DISSEMINATED
     Dosage: UNK
     Route: 065
  2. TENOFOVIR DISOPROXIL [Concomitant]
     Active Substance: TENOFOVIR DISOPROXIL
     Indication: HISTOPLASMOSIS DISSEMINATED
     Dosage: UNK
     Route: 065
  3. DOLUTEGRAVIR [Concomitant]
     Active Substance: DOLUTEGRAVIR
     Indication: HISTOPLASMOSIS DISSEMINATED
     Dosage: UNK
     Route: 065
  4. ITRACONAZOLE. [Suspect]
     Active Substance: ITRACONAZOLE
     Indication: HISTOPLASMOSIS DISSEMINATED
     Dosage: 200 MILLIGRAM, BID
     Route: 048
  5. LIPOSOMAL AMPHOTERICIN B [Concomitant]
     Active Substance: AMPHOTERICIN B
     Indication: HISTOPLASMOSIS DISSEMINATED
     Dosage: UNK (3MG/KG, QD)
     Route: 042

REACTIONS (1)
  - Therapeutic response decreased [Unknown]
